FAERS Safety Report 9364970 (Version 2)
Quarter: 2013Q3

REPORT INFORMATION
  Report Type: Report from Study
  Country: JP (occurrence: JP)
  Receive Date: 20130624
  Receipt Date: 20130917
  Transmission Date: 20140515
  Serious: Yes (Other)
  Sender: FDA-Public Use
  Company Number: JP-VERTEX PHARMACEUTICALS INC-2013-007266

PATIENT
  Age: 49 Year
  Sex: Male

DRUGS (18)
  1. VX-950 (TELAPREVIR) [Suspect]
     Indication: CHRONIC HEPATITIS C
     Dosage: 2250 MG, QD
     Route: 048
     Dates: start: 20120529, end: 20120828
  2. PEGINTRON [Suspect]
     Indication: CHRONIC HEPATITIS C
     Dosage: 1.5 ?G/KG, QW
     Route: 058
     Dates: start: 20120529, end: 20120814
  3. PEGINTRON [Suspect]
     Dosage: 1.27 ?G/KG, QW
     Route: 058
     Dates: start: 20120821, end: 20120828
  4. PEGINTRON [Suspect]
     Dosage: 1.5 ?G, QW
     Route: 058
     Dates: start: 20120904, end: 20121106
  5. REBETOL [Suspect]
     Indication: CHRONIC HEPATITIS C
     Dosage: 800 MG, QD
     Route: 048
     Dates: start: 20120529, end: 20120618
  6. REBETOL [Suspect]
     Dosage: 600 MG, QD
     Route: 048
     Dates: start: 20120619, end: 20120709
  7. REBETOL [Suspect]
     Dosage: 400 MG, QD
     Route: 048
     Dates: start: 20120710, end: 20120814
  8. REBETOL [Suspect]
     Dosage: 200 MG, QD
     Route: 048
     Dates: start: 20120815, end: 20121015
  9. REBETOL [Suspect]
     Dosage: 400 MG, QD
     Route: 048
     Dates: start: 20121016, end: 20121112
  10. ALLELOCK OD [Concomitant]
     Dosage: 10 MG, QD
     Route: 048
     Dates: end: 20121113
  11. ALOSITOL [Concomitant]
     Dosage: 100 MG, QD
     Route: 048
     Dates: start: 20120531
  12. ALOSITOL [Concomitant]
     Dosage: 100 MG, QD
     Route: 048
  13. ALOSITOL [Concomitant]
     Dosage: UNK
  14. ALLEGRA [Concomitant]
     Dosage: 120 MG, QD
     Route: 048
     Dates: end: 20121113
  15. RESTAMIN [Concomitant]
     Dosage: Q.S./DAY, PRN
     Route: 061
  16. BENZMARONE [Concomitant]
     Dosage: 50 MG, QD
     Route: 048
  17. URSO [Concomitant]
     Dosage: 300 MG, QD
     Route: 048
  18. NEUER [Concomitant]
     Dosage: 1200 MG, QD
     Route: 048

REACTIONS (1)
  - Neutrophil count decreased [Recovered/Resolved]
